FAERS Safety Report 23678914 (Version 1)
Quarter: 2024Q1

REPORT INFORMATION
  Report Type: Spontaneous
  Country: US (occurrence: None)
  Receive Date: 20240326
  Receipt Date: 20240326
  Transmission Date: 20240410
  Serious: No
  Sender: FDA-Public Use
  Company Number: None

PATIENT
  Age: 83 Year
  Sex: Female
  Weight: 73.48 kg

DRUGS (1)
  1. RITUXIMAB [Suspect]
     Active Substance: RITUXIMAB
     Indication: Pemphigoid
     Route: 041
     Dates: start: 20240315, end: 20240315

REACTIONS (2)
  - Blood pressure systolic increased [None]
  - Infusion related reaction [None]

NARRATIVE: CASE EVENT DATE: 20240315
